FAERS Safety Report 8279264-2 (Version None)
Quarter: 2012Q2

REPORT INFORMATION
  Report Type: 
  Country: None (occurrence: None)
  Receive Date: 20120412
  Receipt Date: 20110930
  Transmission Date: 20120825
  Serious: Yes (Other)
  Sender: FDA-Public Use
  Company Number: US-ASTRAZENECA-2011SE58868

PATIENT
  Age: 70 Year
  Sex: Female
  Weight: 56.7 kg

DRUGS (1)
  1. NEXIUM [Suspect]
     Indication: GASTROOESOPHAGEAL REFLUX DISEASE
     Route: 048
     Dates: end: 20110927

REACTIONS (4)
  - GASTROOESOPHAGEAL REFLUX DISEASE [None]
  - DIARRHOEA [None]
  - DRUG DOSE OMISSION [None]
  - WRIST FRACTURE [None]
